FAERS Safety Report 15840758 (Version 3)
Quarter: 2019Q1

REPORT INFORMATION
  Report Type: Spontaneous
  Country: RO (occurrence: RO)
  Receive Date: 20190118
  Receipt Date: 20190219
  Transmission Date: 20190417
  Serious: Yes (Death)
  Sender: FDA-Public Use
  Company Number: RO-ROCHE-2248241

PATIENT
  Sex: Female
  Weight: 56 kg

DRUGS (2)
  1. XOLAIR [Suspect]
     Active Substance: OMALIZUMAB
     Indication: ASTHMA
     Dosage: 6 VIAL/MONTH
     Route: 058
     Dates: start: 20180309
  2. CARVEDILOL. [Concomitant]
     Active Substance: CARVEDILOL
     Indication: ESSENTIAL HYPERTENSION
     Dosage: 12.5 OT, QD
     Route: 065

REACTIONS (1)
  - Acute myocardial infarction [Fatal]
